FAERS Safety Report 22585431 (Version 1)
Quarter: 2023Q2

REPORT INFORMATION
  Report Type: Spontaneous
  Country: US (occurrence: US)
  Receive Date: 20230610
  Receipt Date: 20230610
  Transmission Date: 20230722
  Serious: No
  Sender: FDA-Public Use
  Company Number: US-009507513-2306USA000533

PATIENT
  Age: 57 Year
  Sex: Male

DRUGS (2)
  1. STROMECTOL [Suspect]
     Active Substance: IVERMECTIN
     Dosage: 15MG (200MCG/KG/DAY) INDUCTION FOR 2 DAYS
     Route: 048
  2. STROMECTOL [Suspect]
     Active Substance: IVERMECTIN
     Dosage: 15MG (200MCG/KG/DAY) FOR 2 DAYS, 14 DAYS AFTER INDUCTION
     Route: 048

REACTIONS (1)
  - Product use issue [Unknown]
